FAERS Safety Report 4262193-9 (Version None)
Quarter: 2004Q1

REPORT INFORMATION
  Report Type: 
  Country: None (occurrence: None)
  Receive Date: 20040102
  Receipt Date: 20031219
  Transmission Date: 20041129
  Serious: Yes (Hospitalization)
  Sender: FDA-Public Use
  Company Number: WAES 0312NLD00016

PATIENT
  Sex: Female

DRUGS (2)
  1. VIOXX [Suspect]
     Indication: POST PROCEDURAL PAIN
     Dates: start: 20031215, end: 20031218
  2. ACENOCOUMAROL [Concomitant]
     Indication: KNEE ARTHROPLASTY

REACTIONS (1)
  - HAEMARTHROSIS [None]
